FAERS Safety Report 19750877 (Version 1)
Quarter: 2021Q3

REPORT INFORMATION
  Report Type: Spontaneous
  Country: FR (occurrence: FR)
  Receive Date: 20210826
  Receipt Date: 20210826
  Transmission Date: 20211014
  Serious: Yes (Life-Threatening, Other)
  Sender: FDA-Public Use
  Company Number: FR-MYLANLABS-2021M1055524

PATIENT
  Age: 32 Year
  Sex: Male

DRUGS (5)
  1. BROMAZEPAM [Suspect]
     Active Substance: BROMAZEPAM
     Indication: ANXIETY
     Dosage: 1.5 MILLIGRAM, QD
     Route: 048
     Dates: start: 2017
  2. TERCIAN                            /00759302/ [Suspect]
     Active Substance: CYAMEMAZINE
     Indication: DISSOCIATIVE DISORDER
     Dosage: 4 DOSAGE FORM, QD
     Route: 048
     Dates: start: 2016
  3. CIRCADIN [Suspect]
     Active Substance: MELATONIN
     Indication: INSOMNIA
     Dosage: UNK
     Route: 048
     Dates: start: 2020
  4. PANTOPRAZOLE [Suspect]
     Active Substance: PANTOPRAZOLE
     Indication: PRODUCT USED FOR UNKNOWN INDICATION
     Dosage: 20 MILLIGRAM, QD
     Route: 048
     Dates: start: 2018
  5. CLOZAPINE. [Suspect]
     Active Substance: CLOZAPINE
     Indication: DISSOCIATIVE DISORDER
     Dosage: 425 MILLIGRAM, QD
     Route: 048
     Dates: start: 2018, end: 202011

REACTIONS (2)
  - Gastrointestinal necrosis [Recovered/Resolved with Sequelae]
  - Faecaloma [Recovered/Resolved with Sequelae]

NARRATIVE: CASE EVENT DATE: 20201129
